FAERS Safety Report 17065644 (Version 1)
Quarter: 2019Q4

REPORT INFORMATION
  Report Type: Spontaneous
  Country: US (occurrence: US)
  Receive Date: 20191122
  Receipt Date: 20191122
  Transmission Date: 20200122
  Serious: Yes (Other)
  Sender: FDA-Public Use
  Company Number: US-BRACCO-2019US00193

PATIENT
  Age: 45 Year
  Sex: Male

DRUGS (1)
  1. LUMASON [Suspect]
     Active Substance: SULFUR HEXAFLUORIDE
     Indication: STRESS ECHOCARDIOGRAM
     Dosage: UNK, SINGLE
     Dates: start: 20190116, end: 20190116

REACTIONS (6)
  - Feeling hot [Unknown]
  - Dizziness [Unknown]
  - Paraesthesia [Unknown]
  - Erythema [Unknown]
  - Blood pressure decreased [Unknown]
  - Malaise [Unknown]

NARRATIVE: CASE EVENT DATE: 20190116
